FAERS Safety Report 17372790 (Version 7)
Quarter: 2021Q4

REPORT INFORMATION
  Report Type: Spontaneous
  Country: US (occurrence: US)
  Receive Date: 20200205
  Receipt Date: 20211008
  Transmission Date: 20220303
  Serious: Yes (Other)
  Sender: FDA-Public Use
  Company Number: US-ALLERGAN-1949014US

PATIENT
  Sex: Female
  Weight: 54.42 kg

DRUGS (9)
  1. NORCO [Suspect]
     Active Substance: ACETAMINOPHEN\HYDROCODONE BITARTRATE
     Indication: Neck pain
     Dosage: FIVE ^10S^A DAY
     Route: 048
     Dates: end: 20190316
  2. NORCO [Suspect]
     Active Substance: ACETAMINOPHEN\HYDROCODONE BITARTRATE
     Indication: Postoperative care
     Dosage: QID
     Route: 048
     Dates: start: 1999
  3. FENTANYL [Suspect]
     Active Substance: FENTANYL
     Indication: Pain
     Dosage: 25 MG AND GRADUALLY INCREASED IN 25 MG INCREMENTS UNTIL 100 MG DAILY
  4. CINNAMON [Concomitant]
     Active Substance: CINNAMON
     Dosage: UNK
     Route: 048
  5. MOTRIN [Concomitant]
     Active Substance: IBUPROFEN
     Indication: Neck pain
     Dosage: UNK
     Route: 048
  6. KLONOPIN [Concomitant]
     Active Substance: CLONAZEPAM
  7. UNSPECIFIED INGREDIENT [Concomitant]
     Active Substance: UNSPECIFIED INGREDIENT
     Indication: Depression
  8. UNSPECIFIED INGREDIENT [Concomitant]
     Active Substance: UNSPECIFIED INGREDIENT
     Indication: Anxiety
  9. ANTI INFLAMMATORY [Concomitant]
     Indication: Inflammation

REACTIONS (39)
  - Suicide attempt [Unknown]
  - Psychotic disorder [Not Recovered/Not Resolved]
  - Catatonia [Unknown]
  - Brain injury [Not Recovered/Not Resolved]
  - Drug dependence [Unknown]
  - Blood pressure abnormal [Unknown]
  - Dissociation [Not Recovered/Not Resolved]
  - Neck pain [Not Recovered/Not Resolved]
  - Fibromyalgia [Unknown]
  - Intervertebral disc displacement [Unknown]
  - Restless legs syndrome [Unknown]
  - Amnesia [Not Recovered/Not Resolved]
  - Memory impairment [Not Recovered/Not Resolved]
  - Depressed mood [Not Recovered/Not Resolved]
  - Anger [Not Recovered/Not Resolved]
  - Crying [Not Recovered/Not Resolved]
  - Anxiety [Recovered/Resolved]
  - Communication disorder [Not Recovered/Not Resolved]
  - Emotional disorder [Not Recovered/Not Resolved]
  - Impaired quality of life [Not Recovered/Not Resolved]
  - Tooth loss [Unknown]
  - Weight decreased [Not Recovered/Not Resolved]
  - Feeling abnormal [Not Recovered/Not Resolved]
  - Sexual abuse [Unknown]
  - Incorrect product administration duration [Unknown]
  - Limb operation [Unknown]
  - Post-traumatic stress disorder [Not Recovered/Not Resolved]
  - Finger amputation [Unknown]
  - Schizophrenia [Unknown]
  - Bipolar disorder [Not Recovered/Not Resolved]
  - Dissociative identity disorder [Unknown]
  - Psychotic disorder [Unknown]
  - Paranoia [Unknown]
  - Drug withdrawal syndrome [Recovered/Resolved]
  - Mental disorder [Recovering/Resolving]
  - Therapeutic response decreased [Unknown]
  - Pain [Recovered/Resolved]
  - Drug tolerance [Unknown]
  - Confusional state [Not Recovered/Not Resolved]

NARRATIVE: CASE EVENT DATE: 20000101
